FAERS Safety Report 13016911 (Version 1)
Quarter: 2016Q4

REPORT INFORMATION
  Report Type: Spontaneous
  Country: US (occurrence: US)
  Receive Date: 20161209
  Receipt Date: 20161209
  Transmission Date: 20170207
  Serious: No
  Sender: FDA-Public Use
  Company Number: None

PATIENT
  Age: 78 Year
  Sex: Female

DRUGS (3)
  1. EFUDEX [Concomitant]
     Active Substance: FLUOROURACIL
  2. TRIAMCINOLONE ACETONIDE. [Concomitant]
     Active Substance: TRIAMCINOLONE ACETONIDE
  3. OTEZLA [Suspect]
     Active Substance: APREMILAST
     Indication: PSORIASIS
     Route: 048
     Dates: start: 20161117, end: 20161201

REACTIONS (4)
  - Headache [None]
  - Nausea [None]
  - Dizziness [None]
  - Treatment noncompliance [None]

NARRATIVE: CASE EVENT DATE: 20161201
